FAERS Safety Report 6481097-4 (Version None)
Quarter: 2009Q4

REPORT INFORMATION
  Report Type: 
  Country: None (occurrence: None)
  Receive Date: 20091203
  Receipt Date: 20091118
  Transmission Date: 20100525
  Serious: Yes (Other)
  Sender: FDA-Public Use
  Company Number: 1000010460

PATIENT
  Age: 21 Year
  Sex: Female

DRUGS (1)
  1. CITALOPRAM HYDROBROMIDE [Suspect]
     Indication: ANXIETY
     Dosage: 20 MG (20 MG,  1 IN 1 D), ORAL
     Route: 048

REACTIONS (3)
  - HOMICIDAL IDEATION [None]
  - OBSESSIVE THOUGHTS [None]
  - THINKING ABNORMAL [None]
